FAERS Safety Report 6257565-7 (Version None)
Quarter: 2009Q3

REPORT INFORMATION
  Report Type: 
  Country: None (occurrence: None)
  Receive Date: 20090706
  Receipt Date: 20090629
  Transmission Date: 20100115
  Serious: Yes (Other)
  Sender: FDA-Public Use
  Company Number: PHHO2009DE00606

PATIENT
  Sex: Female

DRUGS (3)
  1. ZOLEDRONIC ACID [Suspect]
     Indication: BREAST CANCER
     Dosage: 4 MG, UNK
     Route: 042
     Dates: start: 20070117, end: 20081211
  2. VITAMIN D [Concomitant]
     Dosage: UNK
     Dates: start: 20070117
  3. CALCIUM [Concomitant]
     Dosage: UNK
     Dates: start: 20070117

REACTIONS (1)
  - RESORPTION BONE INCREASED [None]
